FAERS Safety Report 9884155 (Version 1)
Quarter: 2014Q1

REPORT INFORMATION
  Report Type: Spontaneous
  Country: US (occurrence: None)
  Receive Date: 20140207
  Receipt Date: 20140207
  Transmission Date: 20141002
  Serious: Yes (Other)
  Sender: FDA-Public Use
  Company Number: None

PATIENT
  Age: 49 Year
  Sex: Female
  Weight: 95.26 kg

DRUGS (1)
  1. PAROXITINE [Suspect]
     Indication: DEPRESSION
     Dates: start: 20090415, end: 20140206

REACTIONS (5)
  - Migraine [None]
  - Dizziness [None]
  - Nausea [None]
  - Malaise [None]
  - Impaired work ability [None]
